FAERS Safety Report 7824959-5 (Version None)
Quarter: 2011Q4

REPORT INFORMATION
  Report Type: 
  Country: None (occurrence: None)
  Receive Date: 20111019
  Receipt Date: 20110415
  Transmission Date: 20120403
  Serious: No
  Sender: FDA-Public Use
  Company Number: US-BRISTOL-MYERS SQUIBB COMPANY-15602600

PATIENT
  Age: 64 Year
  Sex: Female
  Weight: 74 kg

DRUGS (9)
  1. COLESTIPOL HYDROCHLORIDE [Concomitant]
  2. CRESTOR [Concomitant]
  3. CALCIUM + VITAMIN D [Concomitant]
  4. METFORMIN HCL [Concomitant]
  5. MULTI-VITAMIN [Concomitant]
  6. AVALIDE [Suspect]
     Indication: HYPERTENSION
     Dosage: LAST DOSE: 05MAR2011
     Dates: start: 20080101
  7. RANITIDINE [Concomitant]
  8. VITAMIN B COMPLEX CAP [Concomitant]
  9. ASPIRIN [Concomitant]

REACTIONS (1)
  - BLOOD PRESSURE INCREASED [None]
